FAERS Safety Report 25514993 (Version 1)
Quarter: 2025Q3

REPORT INFORMATION
  Report Type: Spontaneous
  Country: US (occurrence: US)
  Receive Date: 20250703
  Receipt Date: 20250703
  Transmission Date: 20251021
  Serious: No
  Sender: RADIUS PHARM
  Company Number: US-RADIUS HEALTH INC.-US-RADIUS-25047607

PATIENT
  Sex: Female

DRUGS (1)
  1. TYMLOS [Suspect]
     Active Substance: ABALOPARATIDE
     Indication: Osteoporosis postmenopausal
     Dosage: 80 MICROGRAM, QD
     Route: 065
     Dates: start: 20250420, end: 202504

REACTIONS (9)
  - Skin exfoliation [Recovering/Resolving]
  - Swelling face [Recovering/Resolving]
  - Chest pain [Recovering/Resolving]
  - Throat tightness [Recovering/Resolving]
  - Drooling [Recovering/Resolving]
  - Aphasia [Recovering/Resolving]
  - Erythema [Recovering/Resolving]
  - Dyspnoea [Recovering/Resolving]
  - Pruritus [Recovering/Resolving]

NARRATIVE: CASE EVENT DATE: 20250401
